FAERS Safety Report 4309081-7 (Version None)
Quarter: 2004Q1

REPORT INFORMATION
  Report Type: 
  Country: None (occurrence: None)
  Receive Date: 20040227
  Receipt Date: 20040212
  Transmission Date: 20041129
  Serious: Yes (Hospitalization)
  Sender: FDA-Public Use
  Company Number: DSA_23711_2003

PATIENT
  Age: 75 Year
  Sex: Female

DRUGS (10)
  1. DILTIAZEM HYDROCHLORIDE [Suspect]
     Indication: HYPERTENSION
     Dates: start: 20021220, end: 20030106
  2. BISOPROLOL FUMARATE [Suspect]
     Indication: HYPERTENSION
     Dosage: 10 MG Q DAY PO
     Route: 047
     Dates: start: 20021101, end: 20021220
  3. LODOZ [Suspect]
     Indication: HYPERTENSION
     Dates: start: 20011201, end: 20021101
  4. DAFALGAN [Concomitant]
  5. BROMAZEPAM [Concomitant]
  6. LORAZEPAM [Concomitant]
  7. DEROXAT [Concomitant]
  8. CORTANCYL [Concomitant]
  9. ASPIRIN [Concomitant]
  10. GINKGO BILOBA EXTRACT [Concomitant]

REACTIONS (4)
  - LICHEN PLANUS [None]
  - RASH MORBILLIFORM [None]
  - SKIN TEST POSITIVE [None]
  - TOXIC SKIN ERUPTION [None]
